FAERS Safety Report 17855479 (Version 2)
Quarter: 2020Q2

REPORT INFORMATION
  Report Type: Spontaneous
  Country: US (occurrence: US)
  Receive Date: 20200603
  Receipt Date: 20200611
  Transmission Date: 20200714
  Serious: No
  Sender: FDA-Public Use
  Company Number: US-VERTEX PHARMACEUTICALS-2020-011859

PATIENT
  Age: 21 Year
  Sex: Female

DRUGS (17)
  1. PULMOZYME [Concomitant]
     Active Substance: DORNASE ALFA
  2. HYPERSAL [Concomitant]
     Active Substance: SODIUM CHLORIDE
     Dosage: BID
  3. SINGULAIR [Concomitant]
     Active Substance: MONTELUKAST SODIUM
     Route: 048
  4. ALBUTEROL [SALBUTAMOL] [Concomitant]
     Active Substance: ALBUTEROL
     Dosage: 1 VIAL INHALED, BID
  5. SYMBICORT [Concomitant]
     Active Substance: BUDESONIDE\FORMOTEROL FUMARATE DIHYDRATE
     Dosage: 2 PUFFS, BID
  6. FLUTICASONE. [Concomitant]
     Active Substance: FLUTICASONE
     Dosage: 1 SPRAY IN EACH NOSTRIL, BID
     Route: 045
  7. ZOFRAN [Concomitant]
     Active Substance: ONDANSETRON HYDROCHLORIDE
     Dosage: UNK, TID
     Route: 048
  8. CREON [Concomitant]
     Active Substance: PANCRELIPASE AMYLASE\PANCRELIPASE LIPASE\PANCRELIPASE PROTEASE
     Dosage: 4 CAPSULES WITH MEALS AND 3 CAPSULES WITH SNACKS, QD
     Route: 048
  9. PROMETHAZINE [Concomitant]
     Active Substance: PROMETHAZINE HYDROCHLORIDE
     Dosage: EVERY FOUR HOURS
     Route: 048
  10. ERGOCALCIFEROL. [Concomitant]
     Active Substance: ERGOCALCIFEROL
     Route: 048
  11. NUTREN 2.0 [Concomitant]
     Dosage: 120ML/HR OVER 8 HOURS AT NIGHT
  12. PROTONIX [Concomitant]
     Active Substance: PANTOPRAZOLE SODIUM
     Route: 048
  13. TOBI PODHALER [Concomitant]
     Active Substance: TOBRAMYCIN
     Dosage: 28 DAYS ON AND OFF, BID
  14. TRIKAFTA [Suspect]
     Active Substance: ELEXACAFTOR\IVACAFTOR\TEZACAFTOR
     Indication: CYSTIC FIBROSIS
     Dosage: 2 ORANGE TABS100 MG ELEXACAFTOR/ 50 MG TEZACAFTOR/ 75 MG IVACAFTOR AM; 1 BLUE TAB150MG IVACAFTOR PM
     Route: 048
     Dates: start: 20191225
  15. VENTOLIN HFA [Concomitant]
     Active Substance: ALBUTEROL SULFATE
     Dosage: 2 PUFFS, 2-4 TIMES DAILY
  16. TUMS [Concomitant]
     Active Substance: CALCIUM CARBONATE
     Dosage: BID
     Route: 048
  17. FISH OIL [Concomitant]
     Active Substance: FISH OIL
     Route: 048

REACTIONS (1)
  - Rash pruritic [Recovered/Resolved]

NARRATIVE: CASE EVENT DATE: 20200519
